FAERS Safety Report 7642431-2 (Version None)
Quarter: 2011Q3

REPORT INFORMATION
  Report Type: 
  Country: None (occurrence: None)
  Receive Date: 20110728
  Receipt Date: 20101228
  Transmission Date: 20111222
  Serious: No
  Sender: FDA-Public Use
  Company Number: US-MYLANLABS-2010S1023654

PATIENT
  Age: 45 Year
  Sex: Male
  Weight: 90.72 kg

DRUGS (1)
  1. LEVOTHYROXINE SODIUM [Suspect]
     Indication: THYROIDECTOMY
     Route: 048
     Dates: start: 20101208

REACTIONS (3)
  - ABDOMINAL DISTENSION [None]
  - REACTION TO DRUG EXCIPIENTS [None]
  - FLATULENCE [None]
